FAERS Safety Report 20092640 (Version 2)
Quarter: 2021Q4

REPORT INFORMATION
  Report Type: Spontaneous
  Country: JP (occurrence: JP)
  Receive Date: 20211120
  Receipt Date: 20211202
  Transmission Date: 20220303
  Serious: Yes (Death)
  Sender: FDA-Public Use
  Company Number: JP-ABBVIE-21K-087-4155985-00

PATIENT
  Age: 70 Year

DRUGS (2)
  1. VENCLEXTA [Suspect]
     Active Substance: VENETOCLAX
     Indication: Acute myeloid leukaemia
     Route: 048
     Dates: start: 20211101, end: 202111
  2. AZACITIDINE [Concomitant]
     Active Substance: AZACITIDINE
     Indication: Acute myeloid leukaemia
     Dates: start: 20211101, end: 202111

REACTIONS (4)
  - Febrile neutropenia [Fatal]
  - Acute myeloid leukaemia [Fatal]
  - Malaise [Unknown]
  - Leukopenia [Unknown]

NARRATIVE: CASE EVENT DATE: 20211101
